FAERS Safety Report 6052746-X (Version None)
Quarter: 2009Q1

REPORT INFORMATION
  Report Type: 
  Country: None (occurrence: None)
  Receive Date: 20090127
  Receipt Date: 20090121
  Transmission Date: 20090719
  Serious: Yes (Hospitalization)
  Sender: FDA-Public Use
  Company Number: FR-BRISTOL-MYERS SQUIBB COMPANY-14478929

PATIENT
  Age: 62 Year
  Sex: Female

DRUGS (5)
  1. AMIKIN INJ 500 MG/2 ML [Suspect]
     Route: 042
     Dates: start: 20080528, end: 20080602
  2. TAZOCILLINE [Suspect]
     Dosage: 4G/500MG
     Dates: start: 20080528, end: 20080602
  3. CIFLOX [Suspect]
     Dates: start: 20080603, end: 20080617
  4. PYOSTACINE [Suspect]
     Dosage: PYOSTACINE 500 MG
     Dates: start: 20080603, end: 20080617
  5. PEVARYL [Suspect]
     Indication: VULVOVAGINAL MYCOTIC INFECTION
     Dosage: PEVARYL SPRAY
     Route: 061
     Dates: start: 20080528

REACTIONS (1)
  - DIARRHOEA [None]
